APPROVED DRUG PRODUCT: ESLICARBAZEPINE ACETATE
Active Ingredient: ESLICARBAZEPINE ACETATE
Strength: 600MG
Dosage Form/Route: TABLET;ORAL
Application: A211199 | Product #003 | TE Code: AB
Applicant: ALKEM LABORATORIES LTD
Approved: Oct 6, 2023 | RLD: No | RS: No | Type: RX